FAERS Safety Report 7631100-0 (Version None)
Quarter: 2011Q3

REPORT INFORMATION
  Report Type: 
  Country: None (occurrence: None)
  Receive Date: 20110725
  Receipt Date: 20091107
  Transmission Date: 20111222
  Serious: Yes (Other)
  Sender: FDA-Public Use
  Company Number: US-BAYER-200938910NA

PATIENT
  Age: 53 Year
  Sex: Male
  Weight: 113.38 kg

DRUGS (23)
  1. COLACE [Concomitant]
     Dosage: 100 MG, UNK
  2. VICODIN [Concomitant]
     Indication: ARTHRALGIA
  3. VERSED [Concomitant]
     Dosage: UNK
     Route: 048
     Dates: start: 20000905
  4. ACETYLSALICYLIC ACID SRT [Concomitant]
     Dosage: 325 MG, QD
     Route: 048
  5. HEPARIN [Concomitant]
     Route: 042
  6. LORAZEPAM [Concomitant]
     Indication: ANXIETY
  7. PERCOCET [Concomitant]
  8. PROTAMINE SULFATE [Concomitant]
     Dosage: 600 MG, UNK
     Route: 042
     Dates: start: 20000906
  9. PLATELETS [Concomitant]
     Dosage: UNK
     Route: 042
     Dates: start: 20000906
  10. MANNITOL [Concomitant]
     Dosage: UNK
     Dates: start: 20000906
  11. CEFAZOLIN [Concomitant]
     Dosage: UNK
     Dates: start: 20000906
  12. PEPCID [Concomitant]
     Dosage: 20 MG, BID
     Route: 048
  13. NITROGLYCERIN [Concomitant]
     Route: 042
  14. LOPRESSOR [Concomitant]
     Dosage: 25 MG, BID
     Route: 048
  15. FENTANYL [Concomitant]
     Dosage: UNK
     Route: 042
     Dates: start: 20000906
  16. TRASYLOL [Suspect]
     Indication: PRODUCT USED FOR UNKNOWN INDICATION
     Dosage: 200 ML, LOADING DOSE
     Route: 042
     Dates: start: 20000906, end: 20000906
  17. ZOCOR [Concomitant]
     Dosage: 10 MG, QD
     Route: 048
  18. LEVOPHED [Concomitant]
     Dosage: UNK
     Route: 042
     Dates: start: 20000906
  19. NIMBEX [Concomitant]
     Dosage: UNK
     Route: 042
     Dates: start: 20000906
  20. NAPROSYN [Concomitant]
     Indication: ARTHRALGIA
  21. LASIX [Concomitant]
     Dosage: UNK
     Dates: start: 20000906
  22. RESTORIL [Concomitant]
     Dosage: 15 MG, UNK
     Route: 048
  23. NOREPINEPHRINE BITARTRATE [Concomitant]
     Dosage: UNK
     Route: 042
     Dates: start: 20000906

REACTIONS (11)
  - UNEVALUABLE EVENT [None]
  - EMOTIONAL DISTRESS [None]
  - STRESS [None]
  - PAIN [None]
  - FEAR [None]
  - DEPRESSION [None]
  - RENAL IMPAIRMENT [None]
  - RENAL INJURY [None]
  - RENAL FAILURE [None]
  - MYOCARDIAL INFARCTION [None]
  - ANXIETY [None]
